FAERS Safety Report 8535691 (Version 3)
Quarter: 2012Q4

REPORT INFORMATION
  Report Type: 
  Country: US (occurrence: US)
  Receive Date: 20120430
  Receipt Date: 20120926
  Transmission Date: 20130627
  Serious: Yes (Hospitalization, Other)
  Sender: FDA-Public Use
  Company Number: PHEH2012US008549

PATIENT
  Age: 47 None
  Sex: Male
  Weight: 80.73 kg

DRUGS (3)
  1. GILENYA [Suspect]
     Dosage: 0.5 mg, QD
     Route: 048
     Dates: start: 20120411
  2. TYLENOL [Concomitant]
     Dosage: 325 mg, UNK
  3. VITAMIN D [Concomitant]
     Dosage: 1000 IU, UNK

REACTIONS (10)
  - Chest discomfort [Recovered/Resolved]
  - Idiopathic thrombocytopenic purpura [Recovering/Resolving]
  - Vitamin D decreased [Unknown]
  - Amnesia [Unknown]
  - Musculoskeletal discomfort [Unknown]
  - Disturbance in attention [Unknown]
  - Anaemia [Unknown]
  - Hypoaesthesia [Unknown]
  - Vision blurred [Unknown]
  - Paraesthesia [Unknown]
